FAERS Safety Report 18908987 (Version 1)
Quarter: 2021Q1

REPORT INFORMATION
  Report Type: Spontaneous
  Country: US (occurrence: US)
  Receive Date: 20210218
  Receipt Date: 20210218
  Transmission Date: 20210420
  Serious: Yes (Hospitalization, Other)
  Sender: FDA-Public Use
  Company Number: US-APNAR-000091

PATIENT
  Sex: Male

DRUGS (4)
  1. VENLAFAXINE/VENLAFAXINE HYDROCHLORIDE [Suspect]
     Active Substance: VENLAFAXINE HYDROCHLORIDE
     Indication: BIPOLAR DISORDER
     Route: 064
  2. GABAPENTIN. [Suspect]
     Active Substance: GABAPENTIN
     Indication: BIPOLAR DISORDER
     Route: 064
  3. BUPROPION. [Suspect]
     Active Substance: BUPROPION
     Indication: BIPOLAR DISORDER
     Route: 064
  4. QUETIAPINE. [Suspect]
     Active Substance: QUETIAPINE
     Indication: BIPOLAR DISORDER
     Route: 064

REACTIONS (4)
  - Hypertonia [Recovering/Resolving]
  - Foetal exposure during pregnancy [Unknown]
  - Encephalopathy [Recovering/Resolving]
  - Hyperreflexia [Recovering/Resolving]
